FAERS Safety Report 24178960 (Version 2)
Quarter: 2024Q3

REPORT INFORMATION
  Report Type: Spontaneous
  Country: IT (occurrence: IT)
  Receive Date: 20240806
  Receipt Date: 20240905
  Transmission Date: 20241017
  Serious: Yes (Other)
  Sender: RANBAXY
  Company Number: IT-SUN PHARMACEUTICAL INDUSTRIES LTD-2024RR-460774

PATIENT
  Age: 58 Year
  Sex: Female

DRUGS (2)
  1. OXALIPLATIN [Suspect]
     Active Substance: OXALIPLATIN
     Indication: Gastric cancer
     Dosage: 150 MG EVERY 21 DAYS
     Route: 040
     Dates: start: 20240408, end: 20240507
  2. CAPECITABINE [Concomitant]
     Active Substance: CAPECITABINE
     Indication: Gastric cancer
     Dosage: 2300 MG/DAY FOR 14 DAYS FOLLOWED BY A WEEK OFF
     Route: 048
     Dates: start: 20240407, end: 20240421

REACTIONS (4)
  - Sensitisation [Recovered/Resolved with Sequelae]
  - Erythema [Recovered/Resolved with Sequelae]
  - Pruritus [Recovered/Resolved with Sequelae]
  - Hyperhidrosis [Recovered/Resolved with Sequelae]

NARRATIVE: CASE EVENT DATE: 20240507
